FAERS Safety Report 6639625-1 (Version None)
Quarter: 2010Q1

REPORT INFORMATION
  Report Type: 
  Country: None (occurrence: None)
  Receive Date: 20100301
  Receipt Date: 20090811
  Transmission Date: 20100710
  Serious: Yes (Hospitalization)
  Sender: FDA-Public Use
  Company Number: RB-19265-2009

PATIENT
  Sex: Female

DRUGS (1)
  1. SUBOXONE [Suspect]
     Indication: DRUG USE FOR UNKNOWN INDICATION

REACTIONS (9)
  - ANXIETY [None]
  - FLATULENCE [None]
  - INFLUENZA [None]
  - LUNG INFECTION [None]
  - NAUSEA [None]
  - NERVOUSNESS [None]
  - PYREXIA [None]
  - SOMNOLENCE [None]
  - VOMITING [None]
